FAERS Safety Report 9121021 (Version 1)
Quarter: 2013Q1

REPORT INFORMATION
  Report Type: Report from Study
  Country: FR (occurrence: FR)
  Receive Date: 20130226
  Receipt Date: 20130226
  Transmission Date: 20140127
  Serious: Yes (Hospitalization)
  Sender: FDA-Public Use
  Company Number: FR-009507513-2008SP011890

PATIENT
  Age: 73 Year
  Sex: Male
  Weight: 69 kg

DRUGS (18)
  1. PEGINTRON [Suspect]
     Indication: HEPATITIS C
     Dosage: 0.5 ?G/KG, QW
     Dates: start: 20070426, end: 20071017
  2. PEGINTRON [Suspect]
     Dosage: 0.5 ?G/KG, QW
     Dates: start: 20071115, end: 20080221
  3. BLINDED PEGINTERFERON ALFA-2B [Suspect]
     Indication: HEPATITIS C
     Dosage: 1000 MG, QD
     Route: 065
     Dates: start: 20070426, end: 20071017
  4. BLINDED PLACEBO [Suspect]
     Indication: HEPATITIS C
     Dosage: 1000 MG, QD
     Route: 065
     Dates: start: 20070426, end: 20071017
  5. BLINDED POST TRIAL THERAPY [Suspect]
     Indication: HEPATITIS C
     Dosage: 1000 MG, QD
     Route: 065
     Dates: start: 20070426, end: 20071017
  6. BLINDED POST TRIAL THERAPY [Suspect]
     Indication: HEPATITIS C
     Dosage: 1000 MG, QD
     Route: 065
     Dates: start: 20070426, end: 20071017
  7. BLINDED PRE TRIAL THERAPY [Suspect]
     Indication: HEPATITIS C
     Dosage: 1000 MG, QD
     Route: 065
     Dates: start: 20070426, end: 20071017
  8. BLINDED PRE TRIAL THERAPY [Suspect]
     Indication: HEPATITIS C
     Dosage: 1000 MG, QD
     Route: 065
     Dates: start: 20070426, end: 20071017
  9. BLINDED RIBAVIRIN [Suspect]
     Indication: HEPATITIS C
     Dosage: 1000 MG, QD
     Route: 065
     Dates: start: 20070426, end: 20071017
  10. BLINDED PEGINTERFERON ALFA-2B [Suspect]
     Dosage: 1000 MG, QD
     Route: 065
     Dates: start: 20071115, end: 20080221
  11. BLINDED PLACEBO [Suspect]
     Dosage: 1000 MG, QD
     Route: 065
     Dates: start: 20071115, end: 20080221
  12. BLINDED POST TRIAL THERAPY [Suspect]
     Dosage: 1000 MG, QD
     Route: 065
     Dates: start: 20071115, end: 20080221
  13. BLINDED POST TRIAL THERAPY [Suspect]
     Dosage: 1000 MG, QD
     Route: 065
     Dates: start: 20071115, end: 20080221
  14. BLINDED PRE TRIAL THERAPY [Suspect]
     Dosage: 1000 MG, QD
     Route: 065
     Dates: start: 20071115, end: 20080221
  15. BLINDED PRE TRIAL THERAPY [Suspect]
     Dosage: 1000 MG, QD
     Route: 065
     Dates: start: 20071115, end: 20080221
  16. BLINDED RIBAVIRIN [Suspect]
     Dosage: 1000 MG, QD
     Route: 065
     Dates: start: 20071115, end: 20080221
  17. DOLIPRANE [Concomitant]
     Indication: INFLUENZA LIKE ILLNESS
     Dosage: 500 MG, PRN
     Dates: start: 20070426
  18. TARKA [Concomitant]
     Indication: HYPERTENSION
     Dosage: 180 MG, QD
     Dates: start: 20071011

REACTIONS (1)
  - Osteoarthritis [Recovering/Resolving]
